FAERS Safety Report 8994256 (Version 2)
Quarter: 2013Q1

REPORT INFORMATION
  Report Type: Spontaneous
  Country: US (occurrence: US)
  Receive Date: 20130102
  Receipt Date: 20130326
  Transmission Date: 20140127
  Serious: Yes (Other)
  Sender: FDA-Public Use
  Company Number: US-AMGEN-USASP2012081291

PATIENT
  Age: 23 Year
  Sex: Female

DRUGS (1)
  1. ENBREL [Suspect]
     Indication: AUTOIMMUNE INNER EAR DISEASE
     Dosage: 50 MG, QWK
     Dates: start: 20110428

REACTIONS (7)
  - Hearing impaired [Not Recovered/Not Resolved]
  - Peritonsillar abscess [Recovered/Resolved]
  - Tonsillar hypertrophy [Recovered/Resolved]
  - Influenza [Recovered/Resolved]
  - Nasopharyngitis [Recovered/Resolved]
  - Pain [Recovered/Resolved]
  - Pyrexia [Recovered/Resolved]
